FAERS Safety Report 23207398 (Version 1)
Quarter: 2023Q4

REPORT INFORMATION
  Report Type: Spontaneous
  Country: US (occurrence: US)
  Receive Date: 20231120
  Receipt Date: 20231120
  Transmission Date: 20240110
  Serious: Yes (Hospitalization, Other)
  Sender: FDA-Public Use
  Company Number: US-BRACCO-2023US03938

PATIENT
  Age: 72 Year
  Sex: Female

DRUGS (17)
  1. LUMASON [Suspect]
     Active Substance: SULFUR HEXAFLUORIDE
     Indication: Echocardiogram
     Dosage: 2 ML, SINGLE
     Route: 042
     Dates: start: 20230808, end: 20230808
  2. LUMASON [Suspect]
     Active Substance: SULFUR HEXAFLUORIDE
     Indication: Echocardiogram
     Dosage: 2 ML, SINGLE
     Route: 042
     Dates: start: 20230808, end: 20230808
  3. LUMASON [Suspect]
     Active Substance: SULFUR HEXAFLUORIDE
     Indication: Echocardiogram
     Dosage: 2 ML, SINGLE
     Route: 042
     Dates: start: 20230808, end: 20230808
  4. VITAMIN C [Concomitant]
     Active Substance: ASCORBIC ACID
     Dosage: 1000 MG, QD
     Route: 048
  5. ECOTRIN [Concomitant]
     Active Substance: ASPIRIN
     Dosage: 81 MG, QD
     Route: 048
  6. LIPITOR [Concomitant]
     Active Substance: ATORVASTATIN CALCIUM
     Dosage: 80 MG, QD
     Route: 048
  7. JARDIANCE [Concomitant]
     Active Substance: EMPAGLIFLOZIN
     Dosage: 10 MG, QD, TABLET
     Route: 048
  8. LEVOTHYROXINE [Concomitant]
     Active Substance: LEVOTHYROXINE
     Dosage: 50 ?G, QD
     Route: 048
  9. LISINOPRIL [Concomitant]
     Active Substance: LISINOPRIL
     Dosage: 2.5 MG, AT BED TIME
     Route: 048
  10. TOPROL XL [Concomitant]
     Active Substance: METOPROLOL SUCCINATE
     Dosage: 25 MG, QD
     Route: 048
  11. B STRESS [Concomitant]
     Dosage: 1 DF, QD, TABLET
  12. DAILY MULTIPLE VITAMINS WITH IRON [Concomitant]
     Dosage: 1 DF, QD, TABLET
     Route: 048
  13. NITROSTAT [Concomitant]
     Active Substance: NITROGLYCERIN
     Dosage: 0.4 MG, EVERY 5 MINUTE
     Route: 060
  14. FISH OIL\OMEGA-3 FATTY ACIDS [Concomitant]
     Active Substance: FISH OIL\OMEGA-3 FATTY ACIDS
     Dosage: 100 MG, BID, CAPSULE
     Route: 048
  15. ENTRESTO [Concomitant]
     Active Substance: SACUBITRIL\VALSARTAN
     Dosage: 1 DF, BID, 24 MG-26 MG
     Route: 048
  16. ALDACTONE [Concomitant]
     Active Substance: SPIRONOLACTONE
     Dosage: 12.5 MG, QD
     Route: 048
  17. TICAGRELOR [Concomitant]
     Active Substance: TICAGRELOR
     Dosage: 90 MG, BID
     Route: 048

REACTIONS (1)
  - Hypersensitivity [Recovered/Resolved]

NARRATIVE: CASE EVENT DATE: 20230808
